FAERS Safety Report 21223211 (Version 1)
Quarter: 2022Q3

REPORT INFORMATION
  Report Type: Report from Study
  Country: US (occurrence: US)
  Receive Date: 20220817
  Receipt Date: 20220817
  Transmission Date: 20221026
  Serious: Yes (Other)
  Sender: FDA-Public Use
  Company Number: US-PFIZER INC-PV202200041362

PATIENT
  Age: 84 Year
  Sex: Female

DRUGS (4)
  1. EFFEXOR XR [Suspect]
     Active Substance: VENLAFAXINE HYDROCHLORIDE
     Dosage: UNK
  2. DUPILUMAB [Suspect]
     Active Substance: DUPILUMAB
     Indication: Dermatitis atopic
     Dosage: 600 MG, 1X/DAY
     Dates: start: 20190121, end: 20190121
  3. DUPILUMAB [Suspect]
     Active Substance: DUPILUMAB
     Dosage: 300 MG (300 MG EVERY OTHER WEEK/QOW)
     Route: 058
     Dates: start: 20190204
  4. FLONASE [Concomitant]
     Active Substance: FLUTICASONE PROPIONATE
     Indication: Sinus disorder
     Dosage: UNK

REACTIONS (5)
  - Pneumonia bacterial [Unknown]
  - Injection site erythema [Unknown]
  - Pruritus [Unknown]
  - Headache [Unknown]
  - Scratch [Unknown]
